FAERS Safety Report 19082282 (Version 1)
Quarter: 2021Q2

REPORT INFORMATION
  Report Type: Spontaneous
  Country: US (occurrence: US)
  Receive Date: 20210401
  Receipt Date: 20210401
  Transmission Date: 20210717
  Serious: Yes (Hospitalization)
  Sender: FDA-Public Use
  Company Number: None

PATIENT
  Age: 74 Year
  Sex: Male

DRUGS (1)
  1. CAPECITABINE. [Suspect]
     Active Substance: CAPECITABINE
     Indication: COLON CANCER
     Dosage: ?          OTHER FREQUENCY:BID FOR 7 DAYS;?
     Route: 048
     Dates: start: 20210130

REACTIONS (6)
  - Dizziness [None]
  - Dyspnoea [None]
  - Gait disturbance [None]
  - Acute kidney injury [None]
  - Fatigue [None]
  - Vision blurred [None]

NARRATIVE: CASE EVENT DATE: 20210327
